FAERS Safety Report 7278297-2 (Version None)
Quarter: 2011Q1

REPORT INFORMATION
  Report Type: 
  Country: None (occurrence: None)
  Receive Date: 20110202
  Receipt Date: 20110202
  Transmission Date: 20110831
  Serious: Yes (Hospitalization, Other)
  Sender: FDA-Public Use
  Company Number: None

PATIENT
  Age: 54 Year
  Sex: Male
  Weight: 134.7183 kg

DRUGS (1)
  1. CELEBREX [Suspect]
     Indication: ARTHRALGIA
     Dosage: 200MG ONE DAILY PO
     Route: 048
     Dates: start: 20110121, end: 20110121

REACTIONS (7)
  - VISUAL IMPAIRMENT [None]
  - APHASIA [None]
  - VISUAL FIELD DEFECT [None]
  - CHEST PAIN [None]
  - CONFUSIONAL STATE [None]
  - DISORIENTATION [None]
  - AGGRESSION [None]
